FAERS Safety Report 22357331 (Version 3)
Quarter: 2023Q2

REPORT INFORMATION
  Report Type: Report from Study
  Country: US (occurrence: US)
  Receive Date: 20230524
  Receipt Date: 20230628
  Transmission Date: 20230722
  Serious: Yes (Hospitalization, Other)
  Sender: FDA-Public Use
  Company Number: US-ABBVIE-4739285

PATIENT
  Sex: Female

DRUGS (2)
  1. HUMIRA [Suspect]
     Active Substance: ADALIMUMAB
     Indication: Rheumatoid arthritis
     Dosage: CITRATE FREE ?FORM STRENGTH: 40MILLIGRAM
     Route: 058
     Dates: end: 20230516
  2. LEFLUNOMIDE [Suspect]
     Active Substance: LEFLUNOMIDE
     Indication: Product used for unknown indication
     Route: 065

REACTIONS (19)
  - Pneumonia [Unknown]
  - Malaise [Unknown]
  - Brain injury [Unknown]
  - Weight decreased [Unknown]
  - Pain [Unknown]
  - Thyroid disorder [Unknown]
  - Alopecia [Unknown]
  - Near death experience [Unknown]
  - Feeding disorder [Unknown]
  - Cholelithiasis [Unknown]
  - Chronic obstructive pulmonary disease [Unknown]
  - Unevaluable event [Unknown]
  - Feeling abnormal [Unknown]
  - Hypersensitivity [Unknown]
  - Immune system disorder [Unknown]
  - Taste disorder [Unknown]
  - Swelling [Unknown]
  - Rheumatoid arthritis [Not Recovered/Not Resolved]
  - Poisoning [Unknown]
